FAERS Safety Report 6336151-4 (Version None)
Quarter: 2009Q3

REPORT INFORMATION
  Report Type: 
  Country: None (occurrence: None)
  Receive Date: 20090828
  Receipt Date: 20090818
  Transmission Date: 20100115
  Serious: Yes (Other)
  Sender: FDA-Public Use
  Company Number: ADR14012009

PATIENT
  Age: 34 Year
  Sex: Male

DRUGS (1)
  1. CITALOPRAM HYDROBROMIDE [Suspect]
     Dosage: 10MG ORAL
     Route: 048
     Dates: start: 20071210, end: 20080108

REACTIONS (3)
  - COLOUR BLINDNESS ACQUIRED [None]
  - VISUAL FIELD DEFECT [None]
  - VISUAL IMPAIRMENT [None]
